FAERS Safety Report 14244822 (Version 2)
Quarter: 2017Q4

REPORT INFORMATION
  Report Type: Report from Study
  Country: US (occurrence: US)
  Receive Date: 20171201
  Receipt Date: 20171222
  Transmission Date: 20180321
  Serious: Yes (Death)
  Sender: FDA-Public Use
  Company Number: US-ACTELION-A-US2017-158712

PATIENT
  Age: 76 Year
  Sex: Female
  Weight: 87.75 kg

DRUGS (7)
  1. TRAMADOL. [Concomitant]
     Active Substance: TRAMADOL
  2. UPTRAVI [Suspect]
     Active Substance: SELEXIPAG
     Indication: PULMONARY HYPERTENSION
     Dosage: 1600 MCG, BID
     Route: 048
  3. ADCIRCA [Concomitant]
     Active Substance: TADALAFIL
  4. LORAZEPAM. [Concomitant]
     Active Substance: LORAZEPAM
  5. AMBRISENTAN [Suspect]
     Active Substance: AMBRISENTAN
     Indication: PRODUCT USED FOR UNKNOWN INDICATION
     Dosage: 10 MG, QD
     Route: 065
     Dates: start: 20140117
  6. LETAIRIS [Concomitant]
     Active Substance: AMBRISENTAN
  7. MORPHINE [Concomitant]
     Active Substance: MORPHINE

REACTIONS (10)
  - Blood pressure abnormal [Unknown]
  - Contusion [Unknown]
  - Rhinorrhoea [Recovered/Resolved]
  - Ear congestion [Recovered/Resolved]
  - Dizziness [Recovered/Resolved]
  - Pulmonary arterial hypertension [Fatal]
  - Disease complication [Fatal]
  - Loss of consciousness [Unknown]
  - Nasopharyngitis [Recovered/Resolved]
  - Nasal congestion [Not Recovered/Not Resolved]

NARRATIVE: CASE EVENT DATE: 2017
